FAERS Safety Report 7681771-8 (Version None)
Quarter: 2011Q3

REPORT INFORMATION
  Report Type: 
  Country: None (occurrence: None)
  Receive Date: 20110812
  Receipt Date: 20110803
  Transmission Date: 20111222
  Serious: Yes (Hospitalization)
  Sender: FDA-Public Use
  Company Number: US-ASTRAZENECA-2010SE10611

PATIENT
  Age: 56 Year
  Sex: Female

DRUGS (5)
  1. PREDNISONE [Concomitant]
  2. DUONEB [Concomitant]
  3. PULMICORT [Suspect]
     Route: 055
  4. ACCOLATE [Suspect]
     Route: 048
  5. CRESTOR [Suspect]
     Route: 048

REACTIONS (3)
  - DIABETES MELLITUS [None]
  - MYCOTIC ALLERGY [None]
  - RESPIRATORY DISORDER [None]
